FAERS Safety Report 5856365-7 (Version None)
Quarter: 2008Q3

REPORT INFORMATION
  Report Type: 
  Country: None (occurrence: None)
  Receive Date: 20080822
  Receipt Date: 20080822
  Transmission Date: 20090109
  Serious: Yes (Life-Threatening, Hospitalization, Other)
  Sender: FDA-Public Use
  Company Number: None

PATIENT
  Age: 36 Year
  Sex: Male
  Weight: 52.1637 kg

DRUGS (15)
  1. GAMMAGARD [Suspect]
     Indication: CHRONIC INFLAMMATORY DEMYELINATING POLYRADICULONEUROPATHY
     Dosage: 100 GRAMS Q 24 HOURS IV, 2 DOSES
     Route: 042
     Dates: start: 20080719, end: 20080720
  2. FLUVOXAMINE MALEATE [Concomitant]
  3. GABAPENTIN [Concomitant]
  4. PREDNISONE TAB [Concomitant]
  5. LOVENOX [Concomitant]
  6. VIGAMOX [Concomitant]
  7. COPPER [Concomitant]
  8. LORTAB [Concomitant]
  9. SODIUM CHLORIDE WITH POTASSIUJ CHLORIDE [Concomitant]
  10. AMBIEN [Concomitant]
  11. MILK OF MAGNESIA [Concomitant]
  12. DOCUSATE [Concomitant]
  13. DIPHENHYDRAMINE HCL [Concomitant]
  14. LANSOPRAZOLE [Concomitant]
  15. SENNA [Concomitant]

REACTIONS (4)
  - MENINGITIS [None]
  - MENTAL STATUS CHANGES [None]
  - PLEOCYTOSIS [None]
  - RESPIRATORY DEPRESSION [None]
